FAERS Safety Report 4753556-3 (Version None)
Quarter: 2005Q3

REPORT INFORMATION
  Report Type: 
  Country: None (occurrence: None)
  Receive Date: 20050826
  Receipt Date: 20050819
  Transmission Date: 20060218
  Serious: Yes (Other)
  Sender: FDA-Public Use
  Company Number: 200517425GDDC

PATIENT
  Age: 53 Year
  Sex: Female

DRUGS (5)
  1. ARAVA [Suspect]
     Indication: RHEUMATOID ARTHRITIS
     Route: 048
     Dates: start: 20050428, end: 20050601
  2. HUMIRA [Concomitant]
     Indication: RHEUMATOID ARTHRITIS
     Route: 058
  3. PREDNISOLONE [Concomitant]
     Indication: RHEUMATOID ARTHRITIS
     Route: 048
  4. RISEDRONATE [Concomitant]
     Indication: OSTEOPOROSIS
     Route: 048
  5. MIACALCIN [Concomitant]
     Indication: OSTEOPOROSIS
     Dosage: DOSE: 1 PUFFS
     Route: 045

REACTIONS (3)
  - ARTHRALGIA [None]
  - JOINT SWELLING [None]
  - PYREXIA [None]
